FAERS Safety Report 5367765-6 (Version None)
Quarter: 2007Q2

REPORT INFORMATION
  Report Type: 
  Country: None (occurrence: None)
  Receive Date: 20070622
  Receipt Date: 20070608
  Transmission Date: 20071010
  Serious: Yes (Hospitalization)
  Sender: FDA-Public Use
  Company Number: US-SHR-US-2005-019026

PATIENT
  Age: 51 Year
  Sex: Female
  Weight: 108 kg

DRUGS (14)
  1. BETASERON [Suspect]
     Indication: RELAPSING-REMITTING MULTIPLE SCLEROSIS
     Dosage: 8 MIU, EVERY 2D
     Route: 058
     Dates: start: 20021210
  2. HYDROCHLOROTHIAZIDE [Concomitant]
  3. POTASSIUM CHLORIDE [Concomitant]
  4. ASACOL [Concomitant]
  5. AMANTADINE HCL [Concomitant]
  6. MOBIC [Concomitant]
  7. TRAZODONE HCL [Concomitant]
  8. SKELAXIN [Concomitant]
  9. PRILOSEC [Concomitant]
  10. MYSOLINE [Concomitant]
  11. GLUCOSAMINE [Concomitant]
  12. MULTIVITAMIN [Concomitant]
  13. CALCIUM CHLORIDE [Concomitant]
  14. VITAMIN B COMPLEX WITH C [Concomitant]

REACTIONS (5)
  - ARTHRALGIA [None]
  - GAIT DISTURBANCE [None]
  - INTERVERTEBRAL DISC DISORDER [None]
  - INTERVERTEBRAL DISC PROTRUSION [None]
  - MULTIPLE SCLEROSIS [None]
